FAERS Safety Report 9454335 (Version 1)
Quarter: 2013Q3

REPORT INFORMATION
  Report Type: Report from Study
  Country: BR (occurrence: BR)
  Receive Date: 20130812
  Receipt Date: 20130812
  Transmission Date: 20140515
  Serious: Yes (Life-Threatening, Other)
  Sender: FDA-Public Use
  Company Number: PHHY2013BR085060

PATIENT
  Age: 14 Year
  Sex: Male
  Weight: 30 kg

DRUGS (17)
  1. TACROLIMUS [Suspect]
     Dosage: 4 NG/DL
  2. PREDNISON [Concomitant]
     Indication: RENAL TRANSPLANT
     Dosage: UNK UKN, UNK
     Dates: start: 20090110
  3. PREDNISON [Concomitant]
     Dosage: 5 MG, UNK
  4. SIROLIMUS [Concomitant]
     Dosage: UNK
  5. DACLIZUMAB [Concomitant]
     Indication: RENAL TRANSPLANT
     Dosage: UNK
     Dates: start: 20090110
  6. THYMOGLOBULIN [Concomitant]
     Dosage: UNK
  7. DIURETICS [Concomitant]
     Dosage: 300 ML, 24 HOUR
  8. HUMAN IMMUNOGLOBULIN [Concomitant]
     Dosage: 5 CYCLES
  9. METHYLPREDISOLONE [Concomitant]
     Dosage: 5 CYCLES
  10. SIMVASTATIN [Concomitant]
     Dosage: 10 MG, UNK
  11. ENALAPRIL [Concomitant]
     Dosage: 5 MG, UNK
  12. CYCLOSPORIN [Concomitant]
     Indication: RENAL TRANSPLANT
  13. MYFORTIC [Suspect]
     Indication: RENAL TRANSPLANT
     Dosage: UNK
     Dates: start: 20090110
  14. MYFORTIC [Suspect]
     Dosage: 180 MG, PER 12HOUR
  15. CERTICAN [Suspect]
     Indication: RENAL TRANSPLANT
     Dosage: UNK
  16. CERTICAN [Suspect]
     Dosage: 0.75 MG, PER 12 HOUR
  17. TACROLIMUS [Suspect]
     Indication: RENAL TRANSPLANT
     Dosage: UNK
     Dates: start: 20090110

REACTIONS (19)
  - Dyslipidaemia [Unknown]
  - Blood triglycerides increased [Unknown]
  - Blood cholesterol increased [Unknown]
  - Renal haemorrhage [Unknown]
  - Complications of transplanted kidney [Unknown]
  - Kidney transplant rejection [Unknown]
  - Nephrotic syndrome [Unknown]
  - Nephropathy toxic [Unknown]
  - Proteinuria [Unknown]
  - Renal tubular necrosis [Unknown]
  - Blood creatinine increased [Recovered/Resolved]
  - Renal infarct [Unknown]
  - Polyuria [Unknown]
  - Oliguria [Unknown]
  - Focal segmental glomerulosclerosis [Unknown]
  - Tubulointerstitial nephritis [Unknown]
  - Thrombotic microangiopathy [Unknown]
  - Urinary tract infection [Unknown]
  - Gastroenteritis [Unknown]
